FAERS Safety Report 26187583 (Version 1)
Quarter: 2025Q4

REPORT INFORMATION
  Report Type: Spontaneous
  Country: US (occurrence: None)
  Receive Date: 20251222
  Receipt Date: 20251222
  Transmission Date: 20260117
  Serious: Yes (Other)
  Sender: AMERICAN REGENT
  Company Number: US-AMERICAN REGENT INC-2025004438

PATIENT
  Age: 7 Decade
  Sex: Male

DRUGS (1)
  1. ESTRADIOL VALERATE [Suspect]
     Active Substance: ESTRADIOL VALERATE
     Indication: Transgender hormonal therapy
     Dosage: UNK

REACTIONS (4)
  - Carotid arterial embolus [Unknown]
  - Cardio-respiratory arrest [Unknown]
  - Cerebral infarction [Unknown]
  - Product use in unapproved indication [Unknown]
